FAERS Safety Report 23024169 (Version 1)
Quarter: 2023Q4

REPORT INFORMATION
  Report Type: Spontaneous
  Country: MX (occurrence: MX)
  Receive Date: 20231004
  Receipt Date: 20231004
  Transmission Date: 20240110
  Serious: Yes (Hospitalization)
  Sender: FDA-Public Use
  Company Number: MX-NOVOPROD-1122907

PATIENT
  Sex: Male
  Weight: 69 kg

DRUGS (2)
  1. NOVOEIGHT [Suspect]
     Active Substance: ANTIHEMOPHILIC FACTOR, HUMAN RECOMBINANT
     Indication: Factor VIII deficiency
     Dosage: UNK (PATIENT ADJUSTS DOSE ACCORDING TO WHAT HE NEEDS)
     Route: 042
     Dates: start: 2020
  2. NOVOEIGHT [Suspect]
     Active Substance: ANTIHEMOPHILIC FACTOR, HUMAN RECOMBINANT
     Dosage: UNK (DOSE INCREASED)
     Route: 042
     Dates: start: 2020

REACTIONS (1)
  - Hospitalisation [Recovered/Resolved]
